FAERS Safety Report 18799374 (Version 1)
Quarter: 2021Q1

REPORT INFORMATION
  Report Type: Spontaneous
  Country: US (occurrence: US)
  Receive Date: 20210128
  Receipt Date: 20210128
  Transmission Date: 20210419
  Serious: No
  Sender: FDA-Public Use
  Company Number: None

PATIENT
  Age: 37 Year
  Sex: Female
  Weight: 63.5 kg

DRUGS (19)
  1. CITALOPRAM [Concomitant]
     Active Substance: CITALOPRAM HYDROBROMIDE
  2. GABAPENTIN. [Concomitant]
     Active Substance: GABAPENTIN
  3. CHOLECALCIFEROL [Concomitant]
     Active Substance: CHOLECALCIFEROL
  4. LORAZEPAM. [Concomitant]
     Active Substance: LORAZEPAM
  5. QUETIAPINE. [Concomitant]
     Active Substance: QUETIAPINE
  6. FLUTICASONE NASAL (PRN) [Concomitant]
  7. ACETAMINOPHEN (PRN) [Concomitant]
  8. ETHINYL ESTRADIOL?NORETHINDRONE [Concomitant]
  9. BAMLANIVIMAB INJECTION [Suspect]
     Active Substance: BAMLANIVIMAB
     Indication: COVID-19
     Dosage: ?          OTHER FREQUENCY:ONCE;?
     Route: 041
     Dates: start: 20210119, end: 20210119
  10. DOCUSATE [Concomitant]
     Active Substance: DOCUSATE
  11. FRUCTOOLIGOSACCHARIDE?POLYDEXTROSE [Concomitant]
  12. LACTULOSE. [Concomitant]
     Active Substance: LACTULOSE
  13. MULTIVITAMIN WITH MINERALS [Concomitant]
     Active Substance: MINERALS\VITAMINS
  14. LANSOPRAZOLE. [Concomitant]
     Active Substance: LANSOPRAZOLE
  15. TRAZODONE [Concomitant]
     Active Substance: TRAZODONE HYDROCHLORIDE
  16. POLYETHYLENE GLYCOL 3350. [Concomitant]
     Active Substance: POLYETHYLENE GLYCOL 3350
  17. CALCIUM CARBONATE. [Concomitant]
     Active Substance: CALCIUM CARBONATE
  18. IBUPROFEN (PRN) [Concomitant]
  19. BISACODYL (PRN) [Concomitant]

REACTIONS (2)
  - Feeling hot [None]
  - Erythema [None]

NARRATIVE: CASE EVENT DATE: 20210119
